FAERS Safety Report 17967092 (Version 1)
Quarter: 2020Q2

REPORT INFORMATION
  Report Type: Spontaneous
  Country: US (occurrence: US)
  Receive Date: 20200630
  Receipt Date: 20200630
  Transmission Date: 20200714
  Serious: Yes (Hospitalization)
  Sender: FDA-Public Use
  Company Number: None

PATIENT
  Age: 54 Year
  Sex: Male

DRUGS (1)
  1. ALLOPURINOL (ALLOPURINOL 100MG TAB) [Suspect]
     Active Substance: ALLOPURINOL
     Indication: HYPERURICAEMIA
     Route: 048
     Dates: start: 20190717, end: 20191218

REACTIONS (4)
  - Hypersensitivity vasculitis [None]
  - Creatinine renal clearance decreased [None]
  - Diabetes mellitus inadequate control [None]
  - Rash [None]

NARRATIVE: CASE EVENT DATE: 20191215
